FAERS Safety Report 7542332-4 (Version None)
Quarter: 2011Q2

REPORT INFORMATION
  Report Type: 
  Country: None (occurrence: None)
  Receive Date: 20110524
  Receipt Date: 20110307
  Transmission Date: 20111010
  Serious: No
  Sender: FDA-Public Use
  Company Number: 028902

PATIENT
  Sex: Female
  Weight: 88.5 kg

DRUGS (1)
  1. CIMZIA [Suspect]
     Indication: CROHN'S DISEASE
     Dosage: 400 MG 1X/2 SUBCUTANEOUS
     Route: 058
     Dates: start: 20110218

REACTIONS (2)
  - INJECTION SITE REACTION [None]
  - INJECTION SITE PAIN [None]
